FAERS Safety Report 24232360 (Version 2)
Quarter: 2024Q3

REPORT INFORMATION
  Report Type: Spontaneous
  Country: IT (occurrence: IT)
  Receive Date: 20240821
  Receipt Date: 20240823
  Transmission Date: 20241017
  Serious: Yes (Disabling, Other)
  Sender: PFIZER
  Company Number: IT-MLMSERVICE-20240812-PI158366-00047-2

PATIENT
  Age: 51 Year
  Sex: Female

DRUGS (25)
  1. AZITHROMYCIN [Suspect]
     Active Substance: AZITHROMYCIN
     Indication: Osteomyelitis
     Dosage: ADMINISTERED 5 OUT OF 7 DAYS
     Route: 048
  2. AZITHROMYCIN [Suspect]
     Active Substance: AZITHROMYCIN
     Indication: Hepatic infection bacterial
     Dosage: FREQUENCY REDUCTION (500 MG 3 TIMES A WEEK).
     Route: 048
  3. AZITHROMYCIN [Suspect]
     Active Substance: AZITHROMYCIN
     Indication: Pneumonia
     Dosage: UNK
     Dates: start: 2014, end: 2014
  4. AZITHROMYCIN [Suspect]
     Active Substance: AZITHROMYCIN
     Indication: Disseminated mycobacterium avium complex infection
     Dosage: 3 TIMES A WEEK
     Route: 048
  5. AZITHROMYCIN [Suspect]
     Active Substance: AZITHROMYCIN
     Indication: Splenic infection bacterial
  6. AZITHROMYCIN [Suspect]
     Active Substance: AZITHROMYCIN
     Indication: Osteomyelitis
     Dosage: UNK
     Route: 042
  7. AZITHROMYCIN [Suspect]
     Active Substance: AZITHROMYCIN
     Indication: Hepatic infection bacterial
  8. AZITHROMYCIN [Suspect]
     Active Substance: AZITHROMYCIN
     Indication: Pneumonia
  9. AZITHROMYCIN [Suspect]
     Active Substance: AZITHROMYCIN
     Indication: Disseminated mycobacterium avium complex infection
  10. AZITHROMYCIN [Suspect]
     Active Substance: AZITHROMYCIN
     Indication: Splenic infection bacterial
  11. AMIKACIN [Suspect]
     Active Substance: AMIKACIN
     Indication: Pneumonia
     Dosage: UNK
  12. AMIKACIN [Suspect]
     Active Substance: AMIKACIN
     Indication: Osteomyelitis
  13. AMIKACIN [Suspect]
     Active Substance: AMIKACIN
     Indication: Hepatic infection bacterial
  14. AMIKACIN [Suspect]
     Active Substance: AMIKACIN
     Indication: Splenic infection bacterial
  15. AMIKACIN [Suspect]
     Active Substance: AMIKACIN
     Indication: Disseminated mycobacterium avium complex infection
  16. ETHAMBUTOL [Concomitant]
     Active Substance: ETHAMBUTOL HYDROCHLORIDE
     Indication: Osteomyelitis
     Dosage: UNK
     Dates: start: 2014, end: 2014
  17. ETHAMBUTOL [Concomitant]
     Active Substance: ETHAMBUTOL HYDROCHLORIDE
     Indication: Disseminated mycobacterium avium complex infection
  18. ETHAMBUTOL [Concomitant]
     Active Substance: ETHAMBUTOL HYDROCHLORIDE
     Indication: Hepatic infection bacterial
  19. ETHAMBUTOL [Concomitant]
     Active Substance: ETHAMBUTOL HYDROCHLORIDE
     Indication: Pneumonia
  20. ETHAMBUTOL [Concomitant]
     Active Substance: ETHAMBUTOL HYDROCHLORIDE
     Indication: Splenic infection bacterial
  21. RIFAMPIN [Concomitant]
     Active Substance: RIFAMPIN
     Indication: Disseminated mycobacterium avium complex infection
     Dosage: UNK
     Dates: start: 2014, end: 2014
  22. RIFAMPIN [Concomitant]
     Active Substance: RIFAMPIN
     Indication: Hepatic infection bacterial
  23. RIFAMPIN [Concomitant]
     Active Substance: RIFAMPIN
     Indication: Osteomyelitis
  24. RIFAMPIN [Concomitant]
     Active Substance: RIFAMPIN
     Indication: Pneumonia
  25. RIFAMPIN [Concomitant]
     Active Substance: RIFAMPIN
     Indication: Splenic infection bacterial

REACTIONS (3)
  - Deafness neurosensory [Unknown]
  - Drug ineffective [Unknown]
  - Off label use [Unknown]
